FAERS Safety Report 16962212 (Version 2)
Quarter: 2019Q4

REPORT INFORMATION
  Report Type: Spontaneous
  Country: NL (occurrence: NL)
  Receive Date: 20191025
  Receipt Date: 20191030
  Transmission Date: 20200122
  Serious: Yes (Hospitalization, Congenital Anomaly, Other)
  Sender: FDA-Public Use
  Company Number: NL-SA-2019SA289599

PATIENT
  Sex: Male
  Weight: 4 kg

DRUGS (2)
  1. FOLIC ACID. [Concomitant]
     Active Substance: FOLIC ACID
  2. CLOMID [Suspect]
     Active Substance: CLOMIPHENE CITRATE
     Indication: ANOVULATORY CYCLE
     Dosage: 5 DAYS 37.5 MG
     Route: 064

REACTIONS (2)
  - Maternal exposure during pregnancy [Unknown]
  - Double outlet right ventricle [Not Recovered/Not Resolved]
